FAERS Safety Report 24744774 (Version 1)
Quarter: 2024Q4

REPORT INFORMATION
  Report Type: Spontaneous
  Country: US (occurrence: None)
  Receive Date: 20241217
  Receipt Date: 20241217
  Transmission Date: 20250115
  Serious: Yes (Life-Threatening, Other)
  Sender: Public
  Company Number: None

PATIENT
  Age: 59 Year
  Sex: Female
  Weight: 74.25 kg

DRUGS (2)
  1. BIMZELX [Suspect]
     Active Substance: BIMEKIZUMAB-BKZX
     Indication: Psoriasis
     Dates: start: 20240904, end: 20241105
  2. PROTONIX [Concomitant]
     Active Substance: PANTOPRAZOLE SODIUM

REACTIONS (22)
  - Urinary tract infection [None]
  - Injection site rash [None]
  - Headache [None]
  - Nausea [None]
  - Abdominal pain upper [None]
  - Vomiting [None]
  - Pain [None]
  - Near death experience [None]
  - Inadequate analgesia [None]
  - Pyrexia [None]
  - Pneumonia aspiration [None]
  - Drug ineffective [None]
  - Bedridden [None]
  - Hypophagia [None]
  - Oxygen saturation decreased [None]
  - Haemoptysis [None]
  - Sputum discoloured [None]
  - Impaired work ability [None]
  - Tendon pain [None]
  - Abdominal pain upper [None]
  - Arthralgia [None]
  - Pain in extremity [None]

NARRATIVE: CASE EVENT DATE: 20241105
